FAERS Safety Report 7400965-X (Version None)
Quarter: 2011Q2

REPORT INFORMATION
  Report Type: 
  Country: None (occurrence: None)
  Receive Date: 20110407
  Receipt Date: 20110326
  Transmission Date: 20111010
  Serious: Yes (Death)
  Sender: FDA-Public Use
  Company Number: US-PFIZER INC-2008156035

PATIENT
  Sex: Female
  Weight: 63 kg

DRUGS (4)
  1. FOSAMAX [Concomitant]
     Indication: OSTEOPOROSIS
     Dosage: 70 MG, WEEKLY
     Route: 048
     Dates: start: 19980909, end: 20030119
  2. KENALOG [Concomitant]
     Indication: DERMATITIS ATOPIC
     Dosage: 60 MG, SINGLE DOSE
     Dates: start: 20020513, end: 20020513
  3. AMITRIPTYLINE [Concomitant]
     Indication: INSOMNIA
     Dosage: 100 MG, 1X/DAY
     Route: 048
     Dates: start: 19980909, end: 20030119
  4. EXEMESTANE [Suspect]
     Indication: BREAST CANCER
     Dosage: 25 MG, 1X/DAY
     Route: 048
     Dates: start: 20020419, end: 20030117

REACTIONS (1)
  - DEATH [None]
